FAERS Safety Report 16282029 (Version 1)
Quarter: 2019Q2

REPORT INFORMATION
  Report Type: Spontaneous
  Country: DK (occurrence: DK)
  Receive Date: 20190507
  Receipt Date: 20190507
  Transmission Date: 20190711
  Serious: Yes (Hospitalization)
  Sender: FDA-Public Use
  Company Number: DK-MYLANLABS-2019M1024871

PATIENT
  Age: 47 Year
  Sex: Female

DRUGS (10)
  1. KLACID [Suspect]
     Active Substance: CLARITHROMYCIN
     Indication: ABSCESS
     Dosage: UNK
     Route: 048
  2. LINICIN [Concomitant]
     Indication: LICE INFESTATION
     Dosage: UNK
     Route: 061
  3. KLACID [Suspect]
     Active Substance: CLARITHROMYCIN
     Dosage: UNK
     Route: 048
     Dates: start: 20181227
  4. CLARITHROMYCIN HEXAL [Suspect]
     Active Substance: CLARITHROMYCIN
     Indication: ABSCESS
     Dosage: 500 MILLIGRAM, BID
     Route: 048
     Dates: end: 20190118
  5. KLACID [Suspect]
     Active Substance: CLARITHROMYCIN
     Dosage: UNK
     Route: 048
  6. DICILLIN                           /00063302/ [Suspect]
     Active Substance: DICLOXACILLIN SODIUM
     Indication: ABSCESS
     Dosage: 500 MILLIGRAM, TID
     Route: 048
  7. FLUCONAZOL [Suspect]
     Active Substance: FLUCONAZOLE
     Indication: ABSCESS
     Dosage: 50 MILLIGRAM, QD
     Route: 065
  8. PENICILLIN                         /00042301/ [Concomitant]
     Active Substance: PENICILLIN
     Indication: ABSCESS
     Dosage: UNK
     Route: 042
  9. TAZOCIN [Suspect]
     Active Substance: PIPERACILLIN SODIUM\TAZOBACTAM SODIUM
     Indication: ABSCESS
     Dosage: 4 GRAM, BID
     Route: 065
     Dates: start: 20190109
  10. KLACID [Suspect]
     Active Substance: CLARITHROMYCIN
     Dosage: UNK
     Route: 048

REACTIONS (3)
  - Drug ineffective [Unknown]
  - Vomiting [Unknown]
  - Drug intolerance [Unknown]

NARRATIVE: CASE EVENT DATE: 20181227
